FAERS Safety Report 18217684 (Version 1)
Quarter: 2020Q3

REPORT INFORMATION
  Report Type: Spontaneous
  Country: FR (occurrence: FR)
  Receive Date: 20200901
  Receipt Date: 20200901
  Transmission Date: 20201103
  Serious: Yes (Other)
  Sender: FDA-Public Use
  Company Number: FR-MYLANLABS-2020M1075523

PATIENT
  Age: 42 Year
  Sex: Male

DRUGS (13)
  1. DIDANOSINE. [Concomitant]
     Active Substance: DIDANOSINE
     Indication: ANTIRETROVIRAL THERAPY
     Dosage: UNK
     Route: 065
  2. RITONAVIR. [Suspect]
     Active Substance: RITONAVIR
     Indication: ANTIRETROVIRAL THERAPY
     Dosage: UNK
     Route: 065
  3. LOPINAVIR/RITONAVIR [Suspect]
     Active Substance: LOPINAVIR\RITONAVIR
     Indication: ANTIRETROVIRAL THERAPY
     Dosage: UNK
     Route: 065
  4. DARUNAVIR [Concomitant]
     Active Substance: DARUNAVIR
     Indication: ANTIRETROVIRAL THERAPY
     Dosage: UNK
     Route: 065
  5. NEVIRAPINE. [Concomitant]
     Active Substance: NEVIRAPINE
     Indication: ANTIRETROVIRAL THERAPY
     Dosage: UNK
     Route: 065
  6. SODIUM GAMMAHYDROXYBUTYRATE [Concomitant]
     Indication: SUBSTANCE USE
     Dosage: WEEKLY
     Route: 065
     Dates: start: 2009, end: 2012
  7. COCAINE [Concomitant]
     Active Substance: COCAINE
     Indication: SUBSTANCE USE
     Dosage: UNK, MONTHLY
     Route: 065
     Dates: start: 2012, end: 2014
  8. RITONAVIR. [Suspect]
     Active Substance: RITONAVIR
     Dosage: UNK
     Route: 065
  9. AMPRENAVIR [Concomitant]
     Active Substance: AMPRENAVIR
     Indication: ANTIRETROVIRAL THERAPY
     Dosage: UNK
     Route: 065
     Dates: start: 19990727, end: 20021107
  10. DARUNAVIR [Concomitant]
     Active Substance: DARUNAVIR
     Dosage: UNK
     Route: 065
  11. LOPINAVIR/RITONAVIR [Suspect]
     Active Substance: LOPINAVIR\RITONAVIR
     Dosage: UNK
     Route: 065
  12. TENOFOVIR [Concomitant]
     Active Substance: TENOFOVIR
     Indication: ANTIRETROVIRAL THERAPY
     Dosage: UNK
     Route: 065
  13. TENOFOVIR [Concomitant]
     Active Substance: TENOFOVIR
     Dosage: UNK
     Route: 065

REACTIONS (4)
  - Blindness [Unknown]
  - Retinal depigmentation [Unknown]
  - Visual field defect [Unknown]
  - Maculopathy [Unknown]
